FAERS Safety Report 13924819 (Version 1)
Quarter: 2017Q3

REPORT INFORMATION
  Report Type: Spontaneous
  Country: US (occurrence: US)
  Receive Date: 20170831
  Receipt Date: 20170831
  Transmission Date: 20171127
  Serious: No
  Sender: FDA-Public Use
  Company Number: US-GLAXOSMITHKLINE-US2017134018

PATIENT
  Sex: Female

DRUGS (13)
  1. PROZAC [Concomitant]
     Active Substance: FLUOXETINE HYDROCHLORIDE
  2. TOPROL XL [Concomitant]
     Active Substance: METOPROLOL SUCCINATE
  3. FLAX SEED [Concomitant]
     Active Substance: FLAX SEED
  4. COENZYME Q10 [Concomitant]
     Active Substance: UBIDECARENONE
  5. VITAMIN B12 [Concomitant]
     Active Substance: CYANOCOBALAMIN
  6. VITAMIN C [Concomitant]
     Active Substance: ASCORBIC ACID
  7. CALCIUM + MAGNESIUM + ZINC [Concomitant]
     Active Substance: CALCIUM\MAGNESIUM\ZINC
  8. ASPIRIN. [Concomitant]
     Active Substance: ASPIRIN
  9. FISH OIL [Concomitant]
     Active Substance: FISH OIL
  10. IBUPROFEN. [Concomitant]
     Active Substance: IBUPROFEN
  11. VENTOLIN HFA [Suspect]
     Active Substance: ALBUTEROL SULFATE
     Indication: BRONCHITIS CHRONIC
     Dosage: 2 PUFF(S), PRN
     Route: 055
     Dates: start: 2009
  12. FIBER SUPPLEMENT [Concomitant]
  13. PRILOSEC [Concomitant]
     Active Substance: OMEPRAZOLE MAGNESIUM

REACTIONS (5)
  - Wrong technique in product usage process [Unknown]
  - Exposure via skin contact [Unknown]
  - Fine motor skill dysfunction [Not Recovered/Not Resolved]
  - Arthritis [Not Recovered/Not Resolved]
  - Accidental exposure to product [Unknown]
